FAERS Safety Report 14982539 (Version 3)
Quarter: 2018Q2

REPORT INFORMATION
  Report Type: Spontaneous
  Country: US (occurrence: US)
  Receive Date: 20180607
  Receipt Date: 20180613
  Transmission Date: 20180711
  Serious: No
  Sender: FDA-Public Use
  Company Number: US-PFIZER INC-2018230678

PATIENT
  Age: 66 Year
  Sex: Male
  Weight: 83.9 kg

DRUGS (10)
  1. PRISTIQ EXTENDED-RELEASE [Suspect]
     Active Substance: DESVENLAFAXINE SUCCINATE
     Indication: MAJOR DEPRESSION
     Dosage: UNK
  2. PRISTIQ EXTENDED-RELEASE [Suspect]
     Active Substance: DESVENLAFAXINE SUCCINATE
     Dosage: 50 MG, 1X/DAY
     Route: 048
  3. PRISTIQ EXTENDED-RELEASE [Suspect]
     Active Substance: DESVENLAFAXINE SUCCINATE
     Dosage: 50 MG, 2X/DAY (ONE IN THE MORNING AND ONE AT NIGHT)
     Dates: end: 20180601
  4. HYDROCODONE [Concomitant]
     Active Substance: HYDROCODONE
     Indication: ARTHRITIS
     Dosage: 1 DF (7.5), 1X/DAY
     Route: 048
     Dates: start: 2003
  5. PRISTIQ EXTENDED-RELEASE [Suspect]
     Active Substance: DESVENLAFAXINE SUCCINATE
     Dosage: 50 MG, 2X/DAY (TWO 50MG TABLETS AT THE SAME TIME IN THE MORNING)
  6. CELEBREX [Concomitant]
     Active Substance: CELECOXIB
     Indication: ARTHRITIS
     Dosage: 200 MG, 1X/DAY
     Route: 048
     Dates: start: 2000
  7. PRISTIQ EXTENDED-RELEASE [Suspect]
     Active Substance: DESVENLAFAXINE SUCCINATE
     Dosage: 50 MG, 2X/DAY (TWO 50MG TABLETS AT THE SAME TIME AT NIGHT)
  8. D-AMFETAMINE [Concomitant]
     Indication: ATTENTION DEFICIT/HYPERACTIVITY DISORDER
     Dosage: 20 MG, 1X/DAY
     Route: 048
     Dates: start: 2007
  9. HYDROCODONE [Concomitant]
     Active Substance: HYDROCODONE
     Indication: LIMB INJURY
  10. HYDROCODONE [Concomitant]
     Active Substance: HYDROCODONE
     Indication: KNEE ARTHROPLASTY

REACTIONS (9)
  - Hallucination, auditory [Unknown]
  - Blood pressure increased [Unknown]
  - Sedation [Unknown]
  - Loss of personal independence in daily activities [Unknown]
  - Hypersomnia [Unknown]
  - Thinking abnormal [Unknown]
  - Blood cholesterol increased [Unknown]
  - Drug ineffective [Unknown]
  - Stress [Unknown]

NARRATIVE: CASE EVENT DATE: 201805
